FAERS Safety Report 6479563-0 (Version None)
Quarter: 2009Q4

REPORT INFORMATION
  Report Type: 
  Country: None (occurrence: None)
  Receive Date: 20091207
  Receipt Date: 20091207
  Transmission Date: 20100525
  Serious: No
  Sender: FDA-Public Use
  Company Number: None

PATIENT
  Age: 59 Year
  Sex: Male
  Weight: 77.1115 kg

DRUGS (1)
  1. CLONAZEPAM [Suspect]
     Indication: SLEEP DISORDER
     Dosage: 1 1/2 TAB NIGHTLY PO
     Route: 048
     Dates: start: 20091118, end: 20091123

REACTIONS (9)
  - BALANCE DISORDER [None]
  - DIZZINESS [None]
  - FEELING ABNORMAL [None]
  - GAIT DISTURBANCE [None]
  - IMPAIRED DRIVING ABILITY [None]
  - IMPAIRED WORK ABILITY [None]
  - NAUSEA [None]
  - OVERDOSE [None]
  - PRODUCT SUBSTITUTION ISSUE [None]
